FAERS Safety Report 6184184-3 (Version None)
Quarter: 2009Q2

REPORT INFORMATION
  Report Type: 
  Country: None (occurrence: None)
  Receive Date: 20090508
  Receipt Date: 20090501
  Transmission Date: 20091009
  Serious: Yes (Other)
  Sender: FDA-Public Use
  Company Number: US-ASTRAZENECA-2009UW11237

PATIENT
  Age: 81 Year
  Sex: Male
  Weight: 45.4 kg

DRUGS (6)
  1. TOPROL-XL [Suspect]
     Indication: BLOOD PRESSURE
     Route: 048
     Dates: start: 20040101
  2. TOPROL-XL [Suspect]
     Route: 048
  3. TOPROL-XL [Suspect]
     Route: 048
  4. TOPROL-XL [Suspect]
     Dosage: HALF OF A 100 MG TABLET EVERY OTHER DAY
     Route: 048
  5. FLUID PILL [Concomitant]
  6. SYNTHROID [Concomitant]

REACTIONS (4)
  - CEREBROVASCULAR ACCIDENT [None]
  - FEELING COLD [None]
  - FLUID RETENTION [None]
  - WEIGHT DECREASED [None]
